FAERS Safety Report 12649550 (Version 1)
Quarter: 2016Q3

REPORT INFORMATION
  Report Type: Spontaneous
  Country: FR (occurrence: FR)
  Receive Date: 20160812
  Receipt Date: 20160812
  Transmission Date: 20161109
  Serious: Yes (Hospitalization)
  Sender: FDA-Public Use
  Company Number: FR-MYLANLABS-2016M1033022

PATIENT

DRUGS (4)
  1. BRISTOPEN [Suspect]
     Active Substance: OXACILLIN SODIUM
     Indication: SKIN BACTERIAL INFECTION
     Dosage: 2 G, QD
     Route: 042
     Dates: start: 20151209, end: 20151216
  2. CLINDAMYCIN [Suspect]
     Active Substance: CLINDAMYCIN\CLINDAMYCIN PHOSPHATE
     Indication: SKIN BACTERIAL INFECTION
     Dosage: 300 MG, QD
     Route: 048
     Dates: start: 20151209, end: 20151217
  3. PIPERACILLIN AND TAZOBACTAM [Suspect]
     Active Substance: PIPERACILLIN SODIUM\TAZOBACTAM SODIUM
     Indication: SKIN BACTERIAL INFECTION
     Dosage: 4 G, QD
     Route: 042
     Dates: start: 20151207, end: 20151209
  4. ZYVOXID [Suspect]
     Active Substance: LINEZOLID
     Indication: SKIN BACTERIAL INFECTION
     Dosage: 600 MG, QD
     Route: 048
     Dates: start: 20151207, end: 20151209

REACTIONS (3)
  - Administration site oedema [Recovered/Resolved]
  - Pruritus generalised [Recovered/Resolved]
  - Rash maculo-papular [Recovered/Resolved]

NARRATIVE: CASE EVENT DATE: 20151216
